FAERS Safety Report 7861327-4 (Version None)
Quarter: 2011Q4

REPORT INFORMATION
  Report Type: 
  Country: None (occurrence: None)
  Receive Date: 20111027
  Receipt Date: 20111023
  Transmission Date: 20120403
  Serious: Yes (Death)
  Sender: FDA-Public Use
  Company Number: IT-JNJFOC-20111009955

PATIENT
  Sex: Male

DRUGS (5)
  1. RITONAVIR [Concomitant]
     Indication: HIV INFECTION
     Route: 065
  2. EPIVIR [Concomitant]
     Indication: HIV INFECTION
     Route: 065
  3. MILTEFOSINE [Concomitant]
     Indication: PRODUCT USED FOR UNKNOWN INDICATION
     Route: 065
  4. DARUNAVIR ETHANOLATE [Suspect]
     Indication: HIV INFECTION
     Route: 065
  5. RALTEGRAVIR [Concomitant]
     Indication: HIV INFECTION
     Route: 065

REACTIONS (1)
  - LYMPHOMA [None]
